FAERS Safety Report 7914414-6 (Version None)
Quarter: 2011Q4

REPORT INFORMATION
  Report Type: 
  Country: None (occurrence: None)
  Receive Date: 20111115
  Receipt Date: 20111109
  Transmission Date: 20120403
  Serious: No
  Sender: FDA-Public Use
  Company Number: US-PFIZER INC-2011274623

PATIENT
  Age: 58 Year
  Sex: Female

DRUGS (1)
  1. TORISEL [Suspect]
     Dosage: UNK

REACTIONS (6)
  - HYPOPHAGIA [None]
  - DYSGEUSIA [None]
  - HEADACHE [None]
  - STOMATITIS [None]
  - FATIGUE [None]
  - NAUSEA [None]
